FAERS Safety Report 6268158-X (Version None)
Quarter: 2009Q3

REPORT INFORMATION
  Report Type: 
  Country: None (occurrence: None)
  Receive Date: 20090713
  Receipt Date: 20090713
  Transmission Date: 20100115
  Serious: Yes (Other)
  Sender: FDA-Public Use
  Company Number: None

PATIENT
  Sex: Female
  Weight: 65.318 kg

DRUGS (2)
  1. ONDANSETERON ODT, USP 5 MG SANDOZ PRIVATE LTD [Suspect]
     Indication: IMPAIRED GASTRIC EMPTYING
     Dosage: 2-8 MG ODT 30 MIN B4 MEALS DISINTEGRATE ON TONGUE DAILY
  2. ONDANSETERON ODT, USP 5 MG SANDOZ PRIVATE LTD [Suspect]
     Indication: TYPE 1 DIABETES MELLITUS
     Dosage: 2-8 MG ODT 30 MIN B4 MEALS DISINTEGRATE ON TONGUE DAILY

REACTIONS (1)
  - PRODUCT SOLUBILITY ABNORMAL [None]
